FAERS Safety Report 7091018-1 (Version None)
Quarter: 2010Q4

REPORT INFORMATION
  Report Type: 
  Country: None (occurrence: None)
  Receive Date: 20101105
  Receipt Date: 20101105
  Transmission Date: 20110411
  Serious: Yes (Life-Threatening)
  Sender: FDA-Public Use
  Company Number: None

PATIENT
  Age: 47 Year
  Sex: Female
  Weight: 63.6 kg

DRUGS (30)
  1. PHENAZOPYRIDINE 200MG UNKNOWN [Suspect]
     Indication: BLADDER PAIN
     Dosage: 1 TAB PO EVERY 3 HOURS PO
     Route: 048
     Dates: start: 20101001, end: 20101007
  2. PHENAZOPYRIDINE 200MG UNKNOWN [Suspect]
     Indication: URINARY TRACT INFECTION
     Dosage: 1 TAB PO EVERY 3 HOURS PO
     Route: 048
     Dates: start: 20101001, end: 20101007
  3. ORAP [Concomitant]
  4. CA + VIT D [Concomitant]
  5. FIORICET [Concomitant]
  6. ALPRAZOLAM [Concomitant]
  7. LOVAZA [Concomitant]
  8. METHYLPREDNISOLONE [Concomitant]
  9. IMITREX [Concomitant]
  10. PROAIR HFA [Concomitant]
  11. NYSTATIN [Concomitant]
  12. VITAMIN B-12 [Concomitant]
  13. METHYLPHENIDATE [Concomitant]
  14. TRAZODONE [Concomitant]
  15. BENZTROPINE MESYLATE [Concomitant]
  16. LEVAQUIN [Concomitant]
  17. ELMIRON [Concomitant]
  18. KEFLEX [Concomitant]
  19. SUCRALFATE [Concomitant]
  20. PREVACID [Concomitant]
  21. NORETHINDRONE AND ETHINYL ESTRADIOL [Concomitant]
  22. SYNTHROID [Concomitant]
  23. BONIVA [Concomitant]
  24. GABAPENTIN [Concomitant]
  25. PRISTIQ [Concomitant]
  26. PROMETHAZINE [Concomitant]
  27. VICODIN ES [Concomitant]
  28. VITAMIN D [Concomitant]
  29. SODIUM BICARBONATE [Concomitant]
  30. FUROSEMIDE [Concomitant]

REACTIONS (3)
  - HAEMODIALYSIS [None]
  - METHAEMOGLOBINAEMIA [None]
  - RENAL FAILURE ACUTE [None]
